FAERS Safety Report 22330025 (Version 1)
Quarter: 2023Q2

REPORT INFORMATION
  Report Type: Other
  Country: US (occurrence: None)
  Receive Date: 20230517
  Receipt Date: 20230517
  Transmission Date: 20230722
  Serious: No
  Sender: FDA-Public Use
  Company Number: US-ROCHE-3183804

PATIENT
  Age: 50 Year
  Sex: Male

DRUGS (7)
  1. TOCILIZUMAB [Suspect]
     Active Substance: TOCILIZUMAB
     Indication: COVID-19
     Route: 065
  2. REMDESIVIR [Concomitant]
     Active Substance: REMDESIVIR
  3. METHYLPREDNISOLONE [Concomitant]
     Active Substance: METHYLPREDNISOLONE
     Dosage: 40-80 MG DAILY FOR A TOTAL OF 15 DAYS
  4. DABRAFENIB [Concomitant]
     Active Substance: DABRAFENIB
  5. TRAMETINIB [Concomitant]
     Active Substance: TRAMETINIB
  6. NIVOLUMAB [Concomitant]
     Active Substance: NIVOLUMAB
  7. IPILIMUMAB [Concomitant]
     Active Substance: IPILIMUMAB

REACTIONS (2)
  - Off label use [Unknown]
  - No adverse event [Unknown]
